FAERS Safety Report 18231882 (Version 2)
Quarter: 2020Q3

REPORT INFORMATION
  Report Type: Spontaneous
  Country: US (occurrence: US)
  Receive Date: 20200904
  Receipt Date: 20200918
  Transmission Date: 20201103
  Serious: Yes (Other)
  Sender: FDA-Public Use
  Company Number: US-GLENMARK PHARMACEUTICALS-2020GMK049403

PATIENT
  Age: 20 Year
  Sex: Female

DRUGS (2)
  1. SULFAMETHOXAZOLE/TRIMETHOPRIM [Suspect]
     Active Substance: SULFAMETHOXAZOLE\TRIMETHOPRIM
     Indication: ESCHERICHIA INFECTION
  2. SULFAMETHOXAZOLE/TRIMETHOPRIM [Suspect]
     Active Substance: SULFAMETHOXAZOLE\TRIMETHOPRIM
     Indication: STAPHYLOCOCCAL INFECTION
     Dosage: UNK, BID (EVERY 12 HOURS)
     Route: 065

REACTIONS (9)
  - Retinal haemorrhage [Recovered/Resolved]
  - Visual field defect [Recovered/Resolved]
  - Macular oedema [Recovered/Resolved]
  - Blindness [Recovered/Resolved]
  - Aneurysm [Recovered/Resolved]
  - Narrow anterior chamber angle [Recovered/Resolved]
  - Macular degeneration [Recovered/Resolved]
  - Pseudomyopia [Recovered/Resolved]
  - Choroidal effusion [Recovered/Resolved]
